FAERS Safety Report 9157470 (Version 1)
Quarter: 2013Q1

REPORT INFORMATION
  Report Type: Spontaneous
  Country: FR (occurrence: FR)
  Receive Date: 20130312
  Receipt Date: 20130312
  Transmission Date: 20140127
  Serious: Yes (Other)
  Sender: FDA-Public Use
  Company Number: FR-PFIZER INC-2013078506

PATIENT
  Age: 40 Year
  Sex: Male

DRUGS (1)
  1. EFFEXOR LP [Suspect]
     Indication: DEPRESSION
     Dosage: 75 MG, 1X/DAY
     Route: 048
     Dates: start: 200907, end: 201004

REACTIONS (3)
  - Gynaecomastia [Not Recovered/Not Resolved]
  - Abnormal dreams [Recovered/Resolved]
  - Gender identity disorder [Recovered/Resolved]
